FAERS Safety Report 4595417-9 (Version None)
Quarter: 2005Q1

REPORT INFORMATION
  Report Type: 
  Country: None (occurrence: None)
  Receive Date: 20050224
  Receipt Date: 20050208
  Transmission Date: 20050727
  Serious: Yes (Other)
  Sender: FDA-Public Use
  Company Number: USA050290514

PATIENT
  Sex: Female

DRUGS (3)
  1. CYMBALTA [Suspect]
     Indication: DIABETIC NEUROPATHY
     Dosage: 30 MG
     Dates: start: 20050101, end: 20050101
  2. CYMBALTA [Suspect]
     Indication: PAIN
     Dosage: 30 MG
     Dates: start: 20050101, end: 20050101
  3. ELAVIL [Concomitant]

REACTIONS (3)
  - FALL [None]
  - HYPOGLYCAEMIC SEIZURE [None]
  - LOSS OF CONSCIOUSNESS [None]
